FAERS Safety Report 4614211-3 (Version None)
Quarter: 2005Q1

REPORT INFORMATION
  Report Type: 
  Country: None (occurrence: None)
  Receive Date: 20050315
  Receipt Date: 20050228
  Transmission Date: 20050727
  Serious: Yes (Other)
  Sender: FDA-Public Use
  Company Number: B0369700A

PATIENT
  Age: 63 Year
  Sex: Female

DRUGS (3)
  1. VINORELBINE TARTRATE [Suspect]
     Dosage: 15 MG/M2
     Dates: start: 20001205
  2. CISPLATIN [Suspect]
  3. RADIOTHERAPY [Concomitant]

REACTIONS (2)
  - HEMIPLEGIA [None]
  - NEUTROPENIA [None]
